FAERS Safety Report 5585169-8 (Version None)
Quarter: 2008Q1

REPORT INFORMATION
  Report Type: 
  Country: None (occurrence: None)
  Receive Date: 20080104
  Receipt Date: 20080104
  Transmission Date: 20080703
  Serious: Yes (Life-Threatening, Hospitalization, Disabling)
  Sender: FDA-Public Use
  Company Number: None

PATIENT
  Age: 50 Year
  Sex: Male
  Weight: 104.3273 kg

DRUGS (2)
  1. ALTACE [Suspect]
     Indication: HYPERTENSION
     Dosage: 10MG ONCE DAILY
     Dates: start: 20060826, end: 20070102
  2. ALTACE [Suspect]
     Indication: HYPERTENSION
     Dosage: 10MG ONCE DAILY
     Dates: end: 20080102

REACTIONS (3)
  - ANGIOEDEMA [None]
  - DYSPNOEA [None]
  - SWOLLEN TONGUE [None]
